FAERS Safety Report 25199130 (Version 1)
Quarter: 2025Q2

REPORT INFORMATION
  Report Type: Spontaneous
  Country: US (occurrence: US)
  Receive Date: 20250415
  Receipt Date: 20250415
  Transmission Date: 20250716
  Serious: Yes (Hospitalization, Other)
  Sender: LEADING PHARMA
  Company Number: US-LEADINGPHARMA-US-2025LEALIT00067

PATIENT
  Age: 61 Year
  Sex: Female

DRUGS (2)
  1. PROCHLORPERAZINE MALEATE [Suspect]
     Active Substance: PROCHLORPERAZINE MALEATE
     Indication: Nausea
     Route: 065
  2. MORPHINE [Concomitant]
     Active Substance: MORPHINE
     Indication: Pain
     Route: 065

REACTIONS (1)
  - Stress cardiomyopathy [Recovered/Resolved]
